FAERS Safety Report 8449820 (Version 2)
Quarter: 2013Q3

REPORT INFORMATION
  Report Type: Spontaneous
  Country: US (occurrence: US)
  Receive Date: 20120309
  Receipt Date: 20130918
  Transmission Date: 20140515
  Serious: No
  Sender: FDA-Public Use
  Company Number: US-PFIZER INC-2012061380

PATIENT
  Age: 82 Year
  Sex: Female
  Weight: 63.49 kg

DRUGS (5)
  1. NORVASC [Suspect]
     Indication: HYPERTENSION
     Dosage: UNK
  2. NORVASC [Suspect]
     Dosage: 5 MG, DAILY
  3. NORVASC [Suspect]
     Dosage: 5 MG, UNK
  4. ALDACTONE [Suspect]
     Indication: HYPERTENSION
     Dosage: UNK
  5. ALDACTONE [Suspect]
     Dosage: 25 MG, DAILY

REACTIONS (2)
  - Bronchial disorder [Recovering/Resolving]
  - Nasopharyngitis [Recovering/Resolving]
